FAERS Safety Report 6252799-X (Version None)
Quarter: 2009Q2

REPORT INFORMATION
  Report Type: 
  Country: None (occurrence: None)
  Receive Date: 20090629
  Receipt Date: 20090622
  Transmission Date: 20091009
  Serious: Yes (Death)
  Sender: FDA-Public Use
  Company Number: 2009AL000760

PATIENT
  Age: 71 Year
  Sex: Male
  Weight: 108.8633 kg

DRUGS (15)
  1. DIGOXIN [Suspect]
     Indication: CARDIAC FAILURE CONGESTIVE
     Dosage: 0.125MG, DAILY, PO
     Route: 048
     Dates: start: 20080320, end: 20090509
  2. LOPRESSOR [Concomitant]
  3. LISINOPRIL [Concomitant]
  4. COREG [Concomitant]
  5. LASIX [Concomitant]
  6. POTASSIUM CHLORIDE [Concomitant]
  7. ALLOPURINOL [Concomitant]
  8. COLCHICINE [Concomitant]
  9. IRON SULFATETHIAMIN COMPOUND TAB [Concomitant]
  10. GEMFIBROZIL [Concomitant]
  11. GLIPIZIDE [Concomitant]
  12. LOVASTATIN [Concomitant]
  13. HYTRIN [Concomitant]
  14. PRILOSEC [Concomitant]
  15. PROVENTIL-HFA [Concomitant]

REACTIONS (1)
  - MYOCARDIAL INFARCTION [None]
